FAERS Safety Report 7757497-9 (Version None)
Quarter: 2011Q3

REPORT INFORMATION
  Report Type: 
  Country: None (occurrence: None)
  Receive Date: 20110916
  Receipt Date: 20110913
  Transmission Date: 20111222
  Serious: Yes (Hospitalization, Other)
  Sender: FDA-Public Use
  Company Number: DK-ABBOTT-10P-044-0662102-00

PATIENT
  Sex: Female
  Weight: 62 kg

DRUGS (10)
  1. HUMIRA [Suspect]
     Indication: PSORIATIC ARTHROPATHY
     Route: 058
     Dates: start: 20100510
  2. MORPHINE SULFATE [Concomitant]
     Indication: ARTHRALGIA
  3. HUMIRA [Suspect]
     Dates: start: 20100830, end: 20100902
  4. METHOTREXATE [Concomitant]
     Indication: PSORIASIS
     Dates: start: 20101007
  5. METHOTREXATE [Suspect]
     Indication: PSORIATIC ARTHROPATHY
     Route: 048
     Dates: start: 20100101
  6. HUMIRA [Suspect]
     Dates: start: 20101007
  7. HUMIRA [Suspect]
     Dates: start: 20101101
  8. HUMIRA [Suspect]
     Dosage: PAUSED
     Dates: start: 20100801, end: 20100823
  9. DOLOL [Concomitant]
     Indication: ARTHRALGIA
  10. IBUPROFEN [Concomitant]
     Indication: ARTHRALGIA

REACTIONS (17)
  - HEADACHE [None]
  - PHARYNGITIS [None]
  - ORAL HERPES [None]
  - VOMITING [None]
  - BRONCHITIS [None]
  - MALAISE [None]
  - COUGH [None]
  - INFECTION [None]
  - URINARY TRACT INFECTION [None]
  - HIDRADENITIS [None]
  - BLOOD URINE PRESENT [None]
  - PHARYNGEAL INFLAMMATION [None]
  - NAUSEA [None]
  - PYREXIA [None]
  - FATIGUE [None]
  - PHARYNGITIS STREPTOCOCCAL [None]
  - STAPHYLOCOCCAL INFECTION [None]
